FAERS Safety Report 4637082-8 (Version None)
Quarter: 2005Q2

REPORT INFORMATION
  Report Type: 
  Country: None (occurrence: None)
  Receive Date: 20050325
  Receipt Date: 20041221
  Transmission Date: 20051028
  Serious: Yes (Hospitalization)
  Sender: FDA-Public Use
  Company Number: USA040875391

PATIENT
  Age: 81 Year
  Sex: Female
  Weight: 41 kg

DRUGS (8)
  1. EVISTA [Suspect]
     Dates: start: 20030601, end: 20040601
  2. FORTEO [Suspect]
     Indication: OSTEOPOROSIS
     Dosage: 20 UG/1 DAY
     Dates: start: 20040601
  3. CALCIUM CARBONATE + VITAMIN D [Concomitant]
  4. DIGOXIN [Concomitant]
  5. PREVACID [Concomitant]
  6. MACRODANTIN [Concomitant]
  7. KLONOPIN [Concomitant]
  8. ACTONEL [Concomitant]

REACTIONS (12)
  - ANOREXIA [None]
  - ASTHENIA [None]
  - BRADYCARDIA [None]
  - CHEST PAIN [None]
  - COMPRESSION FRACTURE [None]
  - DIZZINESS [None]
  - ELECTROCARDIOGRAM AMBULATORY ABNORMAL [None]
  - NAUSEA [None]
  - PAIN [None]
  - VISION BLURRED [None]
  - VOMITING [None]
  - WEIGHT DECREASED [None]
